FAERS Safety Report 9651121 (Version 2)
Quarter: 2013Q4

REPORT INFORMATION
  Report Type: Spontaneous
  Country: US (occurrence: US)
  Receive Date: 20131029
  Receipt Date: 20131129
  Transmission Date: 20140711
  Serious: Yes (Other)
  Sender: FDA-Public Use
  Company Number: US-PFIZER INC-2013305938

PATIENT
  Age: 80 Year
  Sex: Female
  Weight: 61.22 kg

DRUGS (4)
  1. NORVASC [Suspect]
     Indication: HYPERTENSION
     Dosage: 5 MG, DAILY
     Route: 048
     Dates: end: 20130804
  2. PREMARIN [Concomitant]
     Indication: HYSTERECTOMY
     Dosage: 0.625 MG, UNK
  3. METOPROLOL [Concomitant]
     Indication: HYPERTENSION
     Dosage: 125 MG, 2X/DAY
     Dates: end: 20131102
  4. PRILOSEC [Concomitant]
     Indication: GASTROOESOPHAGEAL REFLUX DISEASE
     Dosage: 20 MG, DAILY

REACTIONS (6)
  - Arthralgia [Not Recovered/Not Resolved]
  - Oedema peripheral [Recovering/Resolving]
  - Dyspnoea [Recovering/Resolving]
  - Urinary incontinence [Not Recovered/Not Resolved]
  - Cough [Recovered/Resolved]
  - Ear discomfort [Not Recovered/Not Resolved]
